FAERS Safety Report 9729108 (Version 1)
Quarter: 2013Q4

REPORT INFORMATION
  Report Type: Spontaneous
  Country: DE (occurrence: DE)
  Receive Date: 20131204
  Receipt Date: 20131204
  Transmission Date: 20140711
  Serious: Yes (Congenital Anomaly, Other)
  Sender: FDA-Public Use
  Company Number: GXKR2013DE003681

PATIENT
  Sex: 0

DRUGS (1)
  1. CITALOPRAM [Suspect]
     Indication: DEPRESSION
     Dosage: MATERNAL DOSE: 1X 20 [MG/D ]
     Route: 064

REACTIONS (4)
  - Atrial septal defect [Recovering/Resolving]
  - Patent ductus arteriosus [Recovering/Resolving]
  - Ventricular septal defect [Recovering/Resolving]
  - Small for dates baby [Recovering/Resolving]
